FAERS Safety Report 13592505 (Version 1)
Quarter: 2017Q2

REPORT INFORMATION
  Report Type: Spontaneous
  Country: CA (occurrence: CA)
  Receive Date: 20170530
  Receipt Date: 20170530
  Transmission Date: 20170830
  Serious: Yes (Other)
  Sender: FDA-Public Use
  Company Number: CA-ROCHE-1939755

PATIENT
  Sex: Female

DRUGS (6)
  1. ALENDRONATE [Concomitant]
     Active Substance: ALENDRONATE SODIUM
  2. ZOPICLONE [Concomitant]
     Active Substance: ZOPICLONE
  3. CYMBALTA [Concomitant]
     Active Substance: DULOXETINE HYDROCHLORIDE
  4. ADALAT [Concomitant]
     Active Substance: NIFEDIPINE
  5. ACTEMRA [Suspect]
     Active Substance: TOCILIZUMAB
     Indication: PRODUCT USED FOR UNKNOWN INDICATION
     Route: 042
     Dates: start: 2013
  6. METOPROLOL. [Concomitant]
     Active Substance: METOPROLOL

REACTIONS (9)
  - Osteoarthritis [Unknown]
  - Gastrooesophageal reflux disease [Unknown]
  - Hiatus hernia [Unknown]
  - Arthralgia [Unknown]
  - Intervertebral disc degeneration [Unknown]
  - Drug ineffective [Unknown]
  - Fibromyalgia [Unknown]
  - Nausea [Unknown]
  - Headache [Unknown]
